FAERS Safety Report 26020055 (Version 1)
Quarter: 2025Q4

REPORT INFORMATION
  Report Type: Spontaneous
  Country: US (occurrence: US)
  Receive Date: 20251110
  Receipt Date: 20251110
  Transmission Date: 20260117
  Serious: No
  Sender: GALPHARM INTERNATIONAL
  Company Number: US-PERRIGO-25US004036

PATIENT
  Age: 55 Year
  Sex: Female
  Weight: 62.132 kg

DRUGS (6)
  1. POLYETHYLENE GLYCOL 3350 [Suspect]
     Active Substance: POLYETHYLENE GLYCOL 3350
     Indication: Bowel preparation
     Dosage: 119 G, SINGLE
     Route: 048
     Dates: start: 20250326, end: 20250326
  2. DULCOLAX (BISACODYL) [Suspect]
     Active Substance: BISACODYL
     Indication: Bowel preparation
     Dosage: 2 TABLETS, SINGLE
     Dates: start: 20250326, end: 20250326
  3. AMLODIPINE [Concomitant]
     Active Substance: AMLODIPINE BESYLATE
     Indication: Hypertension
     Dosage: UNK
     Route: 065
     Dates: start: 202412
  4. VITAMIN C [Concomitant]
     Active Substance: ASCORBIC ACID
     Indication: Supplementation therapy
     Dosage: UNK
     Route: 065
     Dates: start: 2023
  5. VITAMIN B12 [Concomitant]
     Active Substance: CYANOCOBALAMIN
     Indication: Supplementation therapy
     Dosage: UNK
     Route: 065
     Dates: start: 2023
  6. GLUCOSAMINE [Concomitant]
     Active Substance: GLUCOSAMINE
     Indication: Supplementation therapy
     Dosage: UNK
     Route: 065

REACTIONS (10)
  - Presyncope [Recovered/Resolved]
  - Vomiting [Recovered/Resolved]
  - Anal incontinence [Recovered/Resolved]
  - Tremor [Recovered/Resolved]
  - Dizziness [Recovered/Resolved]
  - Feeling cold [Recovered/Resolved]
  - Nausea [Not Recovered/Not Resolved]
  - Diarrhoea [Not Recovered/Not Resolved]
  - Overdose [Unknown]
  - Off label use [Unknown]

NARRATIVE: CASE EVENT DATE: 20250326
